FAERS Safety Report 9066474 (Version 1)
Quarter: 2013Q1

REPORT INFORMATION
  Report Type: Spontaneous
  Country: FR (occurrence: FR)
  Receive Date: 20130214
  Receipt Date: 20130214
  Transmission Date: 20140127
  Serious: Yes (Hospitalization)
  Sender: FDA-Public Use
  Company Number: FR-ASTRAZENECA-2013SE08882

PATIENT
  Age: 3064 Week
  Sex: Male

DRUGS (6)
  1. ATACAND [Suspect]
     Route: 048
     Dates: end: 20121206
  2. ALDACTONE [Suspect]
     Route: 048
     Dates: end: 20121206
  3. CARDENSIEL [Suspect]
     Route: 048
     Dates: end: 20121206
  4. LASILIX [Concomitant]
  5. CALCIDOSE VITAMIN D [Concomitant]
  6. SOLUPRED [Concomitant]

REACTIONS (4)
  - Hypotension [Recovered/Resolved]
  - Renal failure [Recovered/Resolved]
  - Hyponatraemia [Recovered/Resolved]
  - Hyperkalaemia [Recovered/Resolved]
